FAERS Safety Report 6770949-3 (Version None)
Quarter: 2010Q2

REPORT INFORMATION
  Report Type: 
  Country: None (occurrence: None)
  Receive Date: 20100616
  Receipt Date: 20100609
  Transmission Date: 20101027
  Serious: Yes (Other)
  Sender: FDA-Public Use
  Company Number: US-BIOGENIDEC-2010BI019689

PATIENT
  Age: 23 Year
  Sex: Female

DRUGS (3)
  1. AVONEX [Suspect]
     Indication: MULTIPLE SCLEROSIS
     Route: 030
     Dates: start: 20010101, end: 20030101
  2. AVONEX [Suspect]
     Route: 030
     Dates: start: 20030101, end: 20090901
  3. AVONEX [Suspect]
     Route: 030
     Dates: start: 20100501

REACTIONS (2)
  - FOETAL GROWTH RETARDATION [None]
  - VAGINAL HAEMORRHAGE [None]
